FAERS Safety Report 9440994 (Version 1)
Quarter: 2013Q3

REPORT INFORMATION
  Report Type: Spontaneous
  Country: US (occurrence: US)
  Receive Date: 20130805
  Receipt Date: 20130805
  Transmission Date: 20140515
  Serious: No
  Sender: FDA-Public Use
  Company Number: US-B.I. PHARMACEUTICALS,INC./RIDGEFIELD-2013-BI-23069BP

PATIENT
  Age: 75 Year
  Sex: Female
  Weight: 85 kg

DRUGS (12)
  1. TRADJENTA [Suspect]
     Indication: TYPE 2 DIABETES MELLITUS
     Dosage: 5 MG
     Route: 048
     Dates: start: 201306
  2. ASPIRIN [Concomitant]
     Dosage: 81 MG
     Route: 048
  3. PROTONIX [Concomitant]
     Indication: GASTROOESOPHAGEAL REFLUX DISEASE
     Route: 048
  4. MAGNESIUM [Concomitant]
     Indication: MUSCLE SPASMS
     Dosage: STRENGTH: 400MEQ; DAILY DOSE: 400MEQ
     Route: 048
  5. LORATADINE [Concomitant]
     Indication: SEASONAL ALLERGY
     Dosage: 10 MG
     Route: 048
  6. LASIX [Concomitant]
     Indication: OEDEMA PERIPHERAL
     Dosage: 40 MG
     Route: 048
  7. TRAMADOL [Concomitant]
     Indication: NECK PAIN
     Route: 048
  8. TRAMADOL [Concomitant]
     Indication: BACK PAIN
  9. TRAMADOL [Concomitant]
     Indication: PAIN IN EXTREMITY
  10. SIMVASTATIN [Concomitant]
     Indication: BLOOD CHOLESTEROL INCREASED
     Dosage: 40 MG
     Route: 048
  11. MECLIZINE [Concomitant]
     Indication: VERTIGO
     Dosage: 75 MG
     Route: 048
  12. KLOR-CON [Concomitant]
     Dosage: STRENGTH: 10MEQ; DAILY DOSE: 20MEQ
     Route: 048

REACTIONS (1)
  - Exostosis [Not Recovered/Not Resolved]
